FAERS Safety Report 11853013 (Version 1)
Quarter: 2015Q4

REPORT INFORMATION
  Report Type: Spontaneous
  Country: NL (occurrence: NL)
  Receive Date: 20151218
  Receipt Date: 20151218
  Transmission Date: 20160305
  Serious: Yes (Hospitalization, Other)
  Sender: FDA-Public Use
  Company Number: NL-BIOMARINAP-NL-2015-108349

PATIENT
  Sex: Male
  Weight: 32 kg

DRUGS (1)
  1. NAGLAZYME [Suspect]
     Active Substance: GALSULFASE
     Indication: MUCOPOLYSACCHARIDOSIS VI
     Dosage: 35 MG, QW
     Route: 042

REACTIONS (3)
  - Congenital white blood cell disorder [Unknown]
  - Congenital pigmentation disorder [Not Recovered/Not Resolved]
  - Pyrexia [Unknown]
